FAERS Safety Report 17085730 (Version 1)
Quarter: 2019Q4

REPORT INFORMATION
  Report Type: Spontaneous
  Country: US (occurrence: US)
  Receive Date: 20191127
  Receipt Date: 20191127
  Transmission Date: 20200122
  Serious: Yes (Hospitalization)
  Sender: FDA-Public Use
  Company Number: None

PATIENT
  Age: 86 Year
  Sex: Male

DRUGS (12)
  1. CIPRO [Concomitant]
     Active Substance: CIPROFLOXACIN HYDROCHLORIDE
  2. PREDNISONE. [Concomitant]
     Active Substance: PREDNISONE
  3. MEGESTROL [Concomitant]
     Active Substance: MEGESTROL
  4. PANTOPRAZOLE [Concomitant]
     Active Substance: PANTOPRAZOLE
  5. PENICILLIN VK [Concomitant]
     Active Substance: PENICILLIN V POTASSIUM
  6. TOLTERODINE [Concomitant]
     Active Substance: TOLTERODINE
  7. AMLOD/OLMESA [Concomitant]
  8. CLINDAMYCIN. [Concomitant]
     Active Substance: CLINDAMYCIN
  9. TAMSULOSIN [Concomitant]
     Active Substance: TAMSULOSIN
  10. CEFDINIR. [Concomitant]
     Active Substance: CEFDINIR
  11. ZYTIGA [Suspect]
     Active Substance: ABIRATERONE ACETATE
     Indication: PROSTATE CANCER
     Route: 048
     Dates: start: 20190319
  12. AMOX/K CLAV [Concomitant]
     Active Substance: AMOXICILLIN\CLAVULANATE POTASSIUM

REACTIONS (4)
  - Urinary tract infection [None]
  - Gingival disorder [None]
  - Hospitalisation [None]
  - Therapy cessation [None]
